FAERS Safety Report 5201482-8 (Version None)
Quarter: 2006Q4

REPORT INFORMATION
  Report Type: 
  Country: None (occurrence: None)
  Receive Date: 20061004
  Receipt Date: 20060706
  Transmission Date: 20070319
  Serious: No
  Sender: FDA-Public Use
  Company Number: US20060700704

PATIENT
  Sex: Male

DRUGS (4)
  1. ALIMTA [Suspect]
     Dates: start: 20060629
  2. CYANOCOBALAMIN [Concomitant]
  3. FOLIC ACID [Concomitant]
  4. MULTIVITAMINS (ASCORBIC ACID, ERGOCALCIFEROL, FOLIC ACID, NICOTINAMIDE [Concomitant]

REACTIONS (3)
  - DYSPNOEA [None]
  - GASTROINTESTINAL DISORDER [None]
  - HICCUPS [None]
